FAERS Safety Report 5271384-X (Version None)
Quarter: 2007Q1

REPORT INFORMATION
  Report Type: 
  Country: None (occurrence: None)
  Receive Date: 20070321
  Receipt Date: 20070309
  Transmission Date: 20070707
  Serious: Yes (Hospitalization)
  Sender: FDA-Public Use
  Company Number: HQWYE364112MAR07

PATIENT
  Sex: Female
  Weight: 77.18 kg

DRUGS (8)
  1. EFFEXOR XR [Suspect]
     Indication: MENOPAUSAL SYMPTOMS
     Route: 048
     Dates: start: 20061101, end: 20061201
  2. EFFEXOR XR [Suspect]
     Route: 048
     Dates: start: 20061201, end: 20070118
  3. EFFEXOR XR [Suspect]
     Route: 048
     Dates: start: 20070119, end: 20070101
  4. EFFEXOR XR [Suspect]
     Route: 048
     Dates: start: 20070101, end: 20070307
  5. DIOVAN [Concomitant]
     Indication: HYPERTENSION
     Dosage: 80 MG IN THE MORNING
  6. CALCIUM [Concomitant]
     Dosage: DOSE AND FREQUENCY UNSPECIFIED
  7. TYLENOL [Concomitant]
     Indication: ARTHRITIS
     Dosage: 1000 MG IN AM AND PM
  8. SIMVASTATIN [Concomitant]
     Dosage: DOSE AND FREQUENCY UNSPECIFIED

REACTIONS (9)
  - ABNORMAL DREAMS [None]
  - DIZZINESS [None]
  - DRUG INEFFECTIVE [None]
  - DRY MOUTH [None]
  - DYSSTASIA [None]
  - FALL [None]
  - HEADACHE [None]
  - HYPERHIDROSIS [None]
  - TREMOR [None]
